FAERS Safety Report 6190526-5 (Version None)
Quarter: 2009Q2

REPORT INFORMATION
  Report Type: 
  Country: None (occurrence: None)
  Receive Date: 20090513
  Receipt Date: 20090513
  Transmission Date: 20091009
  Serious: Yes (Disabling, Other)
  Sender: FDA-Public Use
  Company Number: None

PATIENT
  Age: 30 Year
  Sex: Female
  Weight: 81.6475 kg

DRUGS (1)
  1. IMITREX [Suspect]
     Indication: MIGRAINE
     Dosage: ONE 100MG TABLET AS NEEDED PO
     Route: 048
     Dates: start: 20060101, end: 20070401

REACTIONS (8)
  - ARTHRALGIA [None]
  - CHONDROPATHY [None]
  - GLOSSODYNIA [None]
  - OROPHARYNGEAL PAIN [None]
  - PAIN [None]
  - PAIN IN JAW [None]
  - PAIN OF SKIN [None]
  - POSTURE ABNORMAL [None]
